FAERS Safety Report 7286369-1 (Version None)
Quarter: 2011Q1

REPORT INFORMATION
  Report Type: 
  Country: None (occurrence: None)
  Receive Date: 20110128
  Receipt Date: 20101231
  Transmission Date: 20110831
  Serious: Yes (Death)
  Sender: FDA-Public Use
  Company Number: AUR-APL-2011-00146

PATIENT
  Age: 33 Year
  Sex: Female

DRUGS (8)
  1. DICLOFENAC [Suspect]
  2. OXYCODONE [Suspect]
  3. NORTRIPTYLINE [Suspect]
  4. TRAZODONE HCL [Suspect]
  5. LISINOPRIL [Suspect]
  6. ROSUVASTATIN [Suspect]
  7. ROSIGLITAZONE [Suspect]
  8. ACETAMINOPHEN AND HYDROCODONE BITARTRATE [Suspect]

REACTIONS (5)
  - MULTIPLE DRUG OVERDOSE [None]
  - POISONING [None]
  - SUICIDAL IDEATION [None]
  - CARDIAC ARREST [None]
  - RESPIRATORY ARREST [None]
